FAERS Safety Report 12852633 (Version 4)
Quarter: 2016Q4

REPORT INFORMATION
  Report Type: Report from Study
  Country: US (occurrence: US)
  Receive Date: 20161017
  Receipt Date: 20161219
  Transmission Date: 20170207
  Serious: Yes (Other)
  Sender: FDA-Public Use
  Company Number: US-BIOGEN-2015BI024919

PATIENT
  Sex: Female

DRUGS (1)
  1. TECFIDERA [Suspect]
     Active Substance: DIMETHYL FUMARATE
     Indication: MULTIPLE SCLEROSIS
     Route: 048
     Dates: start: 20140310

REACTIONS (11)
  - General symptom [Not Recovered/Not Resolved]
  - Drug dose omission [Recovered/Resolved]
  - Oral discomfort [Not Recovered/Not Resolved]
  - Rash [Recovered/Resolved]
  - General physical health deterioration [Unknown]
  - Eating disorder [Unknown]
  - Blindness [Recovered/Resolved]
  - Speech disorder [Not Recovered/Not Resolved]
  - Multiple sclerosis relapse [Not Recovered/Not Resolved]
  - Food allergy [Recovered/Resolved]
  - Claustrophobia [Not Recovered/Not Resolved]
